FAERS Safety Report 5537529-9 (Version None)
Quarter: 2007Q4

REPORT INFORMATION
  Report Type: 
  Country: None (occurrence: None)
  Receive Date: 20071207
  Receipt Date: 20071129
  Transmission Date: 20080405
  Serious: Yes (Other)
  Sender: FDA-Public Use
  Company Number: US-ROCHE-455252

PATIENT
  Age: 56 Year
  Sex: Female
  Weight: 76.2 kg

DRUGS (11)
  1. CAPECITABINE [Suspect]
     Indication: BREAST CANCER
     Dosage: FREQUENCY REPORTED AS DAILY X 14 DAYS.
     Route: 048
     Dates: start: 20060614, end: 20060621
  2. TRASTUZUMAB [Suspect]
     Indication: BREAST CANCER
     Dosage: DOSAGE FORM REPORTED AS VIAL.
     Route: 042
     Dates: start: 20060613, end: 20060621
  3. DOCETAXEL [Suspect]
     Indication: BREAST CANCER
     Dosage: DOSAGE FORM REPORTED AS VIAL.
     Route: 042
     Dates: start: 20060614, end: 20060621
  4. PERCOCET [Concomitant]
     Dates: start: 20060613
  5. HYDROCHLOROTHIAZIDE [Concomitant]
     Dates: start: 20060613
  6. AVACOR [Concomitant]
     Dates: start: 20060613
  7. TYLENOL [Concomitant]
     Dates: start: 20060613, end: 20060613
  8. ANZEMET [Concomitant]
     Dates: start: 20060614
  9. DECADRON [Concomitant]
     Dates: start: 20060614
  10. BENADRYL [Concomitant]
     Dates: start: 20060614, end: 20060614
  11. KEFLEX [Concomitant]
     Dates: start: 20060613, end: 20060623

REACTIONS (1)
  - NEUTROPENIA [None]
